FAERS Safety Report 25285069 (Version 2)
Quarter: 2025Q2

REPORT INFORMATION
  Report Type: Report from Study
  Country: US (occurrence: US)
  Receive Date: 20250508
  Receipt Date: 20250527
  Transmission Date: 20250717
  Serious: No
  Sender: ACADIA PHARMACEUTICALS
  Company Number: US-ACADIA PHARMACEUTICALS INC.-ACA-2025-PIM-005245

PATIENT
  Sex: Male

DRUGS (11)
  1. NUPLAZID [Suspect]
     Active Substance: PIMAVANSERIN TARTRATE
     Indication: Parkinson^s disease
     Dosage: 34 MILLIGRAM, QD
     Route: 048
     Dates: start: 20250420, end: 20250426
  2. NUPLAZID [Suspect]
     Active Substance: PIMAVANSERIN TARTRATE
     Indication: Hallucination
  3. AMANTADINE [Concomitant]
     Active Substance: AMANTADINE
  4. ATORVASTATIN [Concomitant]
     Active Substance: ATORVASTATIN
  5. CARBIDOPA\LEVODOPA [Concomitant]
     Active Substance: CARBIDOPA\LEVODOPA
  6. FLUDROCORTISONE [Concomitant]
     Active Substance: FLUDROCORTISONE
  7. MYRBETRIQ [Concomitant]
     Active Substance: MIRABEGRON
  8. QUETIAPINE [Concomitant]
     Active Substance: QUETIAPINE
  9. MIRTAZAPINE [Concomitant]
     Active Substance: MIRTAZAPINE
  10. CALCIUM CITRATE [Concomitant]
     Active Substance: CALCIUM CITRATE
  11. VITAMIN D3 [Concomitant]
     Active Substance: CHOLECALCIFEROL

REACTIONS (2)
  - Somnolence [Recovering/Resolving]
  - Confusional state [Recovering/Resolving]
